FAERS Safety Report 13940140 (Version 2)
Quarter: 2017Q3

REPORT INFORMATION
  Report Type: Report from Study
  Country: FR (occurrence: FR)
  Receive Date: 20170906
  Receipt Date: 20170926
  Transmission Date: 20171127
  Serious: Yes (Other)
  Sender: FDA-Public Use
  Company Number: FR-SUN PHARMACEUTICAL INDUSTRIES LTD-2017RR-148891

PATIENT

DRUGS (1)
  1. TEMOZOLOMIDE. [Suspect]
     Active Substance: TEMOZOLOMIDE
     Indication: PITUITARY TUMOUR
     Route: 065

REACTIONS (12)
  - Abdominal pain [Unknown]
  - Drug effect incomplete [Unknown]
  - Drug ineffective [Unknown]
  - Haemorrhage [Unknown]
  - Headache [Recovered/Resolved]
  - Disease progression [Unknown]
  - Asthenia [Unknown]
  - Nausea [Unknown]
  - Diarrhoea [Unknown]
  - Normal pressure hydrocephalus [Unknown]
  - Vomiting [Unknown]
  - Disease recurrence [Unknown]
